FAERS Safety Report 10096201 (Version 2)
Quarter: 2014Q2

REPORT INFORMATION
  Report Type: Spontaneous
  Country: US (occurrence: US)
  Receive Date: 20140422
  Receipt Date: 20140604
  Transmission Date: 20141212
  Serious: No
  Sender: FDA-Public Use
  Company Number: US-009507513-1404USA011244

PATIENT
  Sex: Female
  Weight: 77.98 kg

DRUGS (2)
  1. OXYTROL FOR WOMEN [Suspect]
     Indication: URINARY INCONTINENCE
     Dosage: UNK, UNKNOWN
     Route: 062
     Dates: start: 201402, end: 201403
  2. ZYRTEC [Concomitant]
     Indication: HYPERSENSITIVITY
     Dosage: UNK, UNKNOWN

REACTIONS (4)
  - Alopecia [Not Recovered/Not Resolved]
  - Application site rash [Recovered/Resolved]
  - Inappropriate schedule of drug administration [Unknown]
  - Product adhesion issue [Unknown]
